FAERS Safety Report 13001409 (Version 1)
Quarter: 2016Q4

REPORT INFORMATION
  Report Type: Spontaneous
  Country: DE (occurrence: DE)
  Receive Date: 20161206
  Receipt Date: 20161206
  Transmission Date: 20170207
  Serious: Yes (Disabling)
  Sender: FDA-Public Use
  Company Number: DE-ROCHE-1819200

PATIENT
  Age: 73 Year
  Sex: Female
  Weight: 60 kg

DRUGS (13)
  1. AVASTIN [Suspect]
     Active Substance: BEVACIZUMAB
     Dosage: 100 MG IN 0.05 ML
     Route: 050
     Dates: start: 20161024, end: 20161024
  2. TORASEMID [Concomitant]
     Active Substance: TORSEMIDE
  3. AVASTIN [Suspect]
     Active Substance: BEVACIZUMAB
     Indication: AGE-RELATED MACULAR DEGENERATION
     Dosage: 100 MG IN 0.05 ML
     Route: 050
     Dates: start: 20160603, end: 20160808
  4. HUMIRA [Concomitant]
     Active Substance: ADALIMUMAB
  5. METFORMIN [Concomitant]
     Active Substance: METFORMIN HYDROCHLORIDE
  6. PREDNISOLONE. [Concomitant]
     Active Substance: PREDNISOLONE
  7. ATORVASTATIN [Concomitant]
     Active Substance: ATORVASTATIN
  8. IBUPROFEN. [Concomitant]
     Active Substance: IBUPROFEN
  9. AMARYL [Concomitant]
     Active Substance: GLIMEPIRIDE
  10. VERAPAMIL [Concomitant]
     Active Substance: VERAPAMIL HYDROCHLORIDE
  11. ATACAND [Concomitant]
     Active Substance: CANDESARTAN CILEXETIL
  12. ASPIRIN. [Concomitant]
     Active Substance: ASPIRIN
  13. LEFLUNOMID [Concomitant]
     Active Substance: LEFLUNOMIDE

REACTIONS (7)
  - Eyelid oedema [Recovering/Resolving]
  - Decreased appetite [Recovering/Resolving]
  - Fatigue [Recovering/Resolving]
  - Swelling face [Unknown]
  - Weight decreased [Recovering/Resolving]
  - Off label use [Unknown]
  - Product use issue [Unknown]

NARRATIVE: CASE EVENT DATE: 201608
